FAERS Safety Report 26168822 (Version 1)
Quarter: 2025Q4

REPORT INFORMATION
  Report Type: Spontaneous
  Country: US (occurrence: US)
  Receive Date: 20251217
  Receipt Date: 20251217
  Transmission Date: 20260117
  Serious: No
  Sender: PACIRA
  Company Number: US-ORG100016242-2025000235

PATIENT
  Age: 74 Year
  Sex: Male

DRUGS (3)
  1. EXPAREL [Suspect]
     Active Substance: BUPIVACAINE
     Indication: Spinal laminectomy
     Route: 050
     Dates: start: 20250617, end: 20250617
  2. MARCAINE [Suspect]
     Active Substance: BUPIVACAINE HYDROCHLORIDE
     Indication: Spinal laminectomy
     Dosage: 10 CC 0.5%
     Route: 050
     Dates: start: 20250617, end: 20250617
  3. MARCAINE [Suspect]
     Active Substance: BUPIVACAINE HYDROCHLORIDE
     Indication: Spinal laminectomy
     Dosage: 30 CC 0.5% MIXED WITH EXPAREL
     Route: 050
     Dates: start: 20250617, end: 20250617

REACTIONS (3)
  - Dysstasia [Recovered/Resolved]
  - Hypoaesthesia [Recovered/Resolved]
  - Gait disturbance [Recovered/Resolved]

NARRATIVE: CASE EVENT DATE: 20250617
